FAERS Safety Report 21528226 (Version 2)
Quarter: 2022Q4

REPORT INFORMATION
  Report Type: Report from Study
  Country: US (occurrence: None)
  Receive Date: 20221031
  Receipt Date: 20221108
  Transmission Date: 20230112
  Serious: Yes (Hospitalization)
  Sender: FDA-Public Use
  Company Number: US-ROCHE-3206855

PATIENT
  Age: 78 Year
  Sex: Male
  Weight: 80.3 kg

DRUGS (3)
  1. FLUOROURACIL [Suspect]
     Active Substance: FLUOROURACIL
     Indication: Bladder cancer
     Dosage: LAST DOSE ADMINISTERED 17/MAY/2021
     Route: 042
     Dates: start: 20210421
  2. MITOMYCIN C [Suspect]
     Active Substance: MITOMYCIN
     Indication: Bladder cancer
     Dosage: LAST ADMINISTERED DOSE ON 21/APR/2021
     Route: 065
     Dates: start: 20210421
  3. ATEZOLIZUMAB [Suspect]
     Active Substance: ATEZOLIZUMAB
     Indication: Bladder cancer
     Dosage: LAST ADMINISTERED DOSE ON 21/APR/2021
     Route: 041
     Dates: start: 20210421

REACTIONS (1)
  - Dyspnoea exertional [Recovering/Resolving]

NARRATIVE: CASE EVENT DATE: 20210719
